FAERS Safety Report 5627611-X (Version None)
Quarter: 2008Q1

REPORT INFORMATION
  Report Type: 
  Country: None (occurrence: None)
  Receive Date: 20080214
  Receipt Date: 20080214
  Transmission Date: 20080703
  Serious: Yes (Other)
  Sender: FDA-Public Use
  Company Number: None

PATIENT
  Age: 38 Year
  Sex: Male
  Weight: 125.1928 kg

DRUGS (1)
  1. LITHIUM CARBONATE [Suspect]
     Indication: BIPOLAR DISORDER
     Dosage: 600MG EACH AM PO 300MG EACH PM PO
     Route: 048
     Dates: start: 20070911, end: 20080211

REACTIONS (18)
  - AMNESIA [None]
  - ARTHRALGIA [None]
  - CONFUSIONAL STATE [None]
  - DISORIENTATION [None]
  - DYSARTHRIA [None]
  - DYSPHEMIA [None]
  - FALL [None]
  - HALLUCINATION [None]
  - HIP FRACTURE [None]
  - MUSCLE SPASMS [None]
  - NERVOUS SYSTEM DISORDER [None]
  - POST PROCEDURAL COMPLICATION [None]
  - SALIVARY HYPERSECRETION [None]
  - SLEEP APNOEA SYNDROME [None]
  - SLEEP TERROR [None]
  - THERAPEUTIC AGENT TOXICITY [None]
  - THYROID FUNCTION TEST ABNORMAL [None]
  - TREMOR [None]
